FAERS Safety Report 5324700-4 (Version None)
Quarter: 2007Q2

REPORT INFORMATION
  Report Type: 
  Country: None (occurrence: None)
  Receive Date: 20070509
  Receipt Date: 20070423
  Transmission Date: 20071010
  Serious: Yes (Hospitalization)
  Sender: FDA-Public Use
  Company Number: A-CH2007-15142

PATIENT
  Age: 11 Year
  Sex: Female

DRUGS (3)
  1. MIGLUSTAT(MIGLUSTAT I.NP CAPSULE 100MG) CAPSULE [Suspect]
     Indication: NIEMANN-PICK DISEASE
     Dosage: 200 MG, BID, ORAL
     Route: 048
     Dates: start: 20031010, end: 20070423
  2. CLONAZEPAM [Concomitant]
  3. IMIPRAMINE [Concomitant]

REACTIONS (9)
  - ABDOMINAL PAIN [None]
  - ACROCHORDON [None]
  - CROHN'S DISEASE [None]
  - DIARRHOEA [None]
  - GENITAL PAIN [None]
  - PAINFUL DEFAECATION [None]
  - PROCTALGIA [None]
  - PYREXIA [None]
  - VULVAL ABSCESS [None]
